FAERS Safety Report 6772566-8 (Version None)
Quarter: 2010Q2

REPORT INFORMATION
  Report Type: 
  Country: None (occurrence: None)
  Receive Date: 20100616
  Receipt Date: 20100122
  Transmission Date: 20101027
  Serious: No
  Sender: FDA-Public Use
  Company Number: US-ASTRAZENECA-2010SE03088

PATIENT
  Age: 83 Year
  Sex: Female
  Weight: 74.4 kg

DRUGS (6)
  1. PULMICORT FLEXHALER [Suspect]
     Indication: CHRONIC OBSTRUCTIVE PULMONARY DISEASE
     Route: 055
     Dates: start: 20100113, end: 20100115
  2. PULMICORT FLEXHALER [Suspect]
     Route: 055
     Dates: start: 20100118, end: 20100118
  3. OXYGEN [Concomitant]
     Indication: CHRONIC OBSTRUCTIVE PULMONARY DISEASE
  4. TOPROL-XL [Concomitant]
     Indication: HYPERTENSION
  5. LOMOTIL [Concomitant]
  6. MUCINEX [Concomitant]

REACTIONS (3)
  - DIZZINESS [None]
  - DYSPHONIA [None]
  - VISUAL IMPAIRMENT [None]
